FAERS Safety Report 20774472 (Version 1)
Quarter: 2022Q2

REPORT INFORMATION
  Report Type: Spontaneous
  Country: US (occurrence: None)
  Receive Date: 20220430
  Receipt Date: 20220430
  Transmission Date: 20220721
  Serious: Yes (Hospitalization)
  Sender: FDA-Public Use
  Company Number: None

PATIENT
  Age: 42 Year
  Sex: Male
  Weight: 81.9 kg

DRUGS (14)
  1. VANCOMYCIN [Suspect]
     Active Substance: VANCOMYCIN
     Indication: Osteomyelitis
     Dosage: OTHER FREQUENCY : Q8H;?
     Route: 041
     Dates: start: 20211216, end: 20211218
  2. KETOROLAC [Suspect]
     Active Substance: KETOROLAC TROMETHAMINE
     Indication: Back pain
     Dosage: FREQUENCY : AS NEEDED;?
     Route: 040
     Dates: start: 20211216, end: 20211218
  3. AMLODIPINE [Concomitant]
     Active Substance: AMLODIPINE BESYLATE
     Dates: start: 20211216, end: 20211219
  4. BACLOFEN [Concomitant]
     Active Substance: BACLOFEN
     Dates: start: 20211216, end: 20211219
  5. CEFTRIAXONE [Concomitant]
     Active Substance: CEFTRIAXONE
     Dates: start: 20211215, end: 20211219
  6. ENOXAPARIN [Concomitant]
     Active Substance: ENOXAPARIN
     Dates: start: 20211216, end: 20211219
  7. GABAPENTIN [Concomitant]
     Active Substance: GABAPENTIN
     Dates: start: 20211216, end: 20211219
  8. HYDRALAZINE [Concomitant]
     Active Substance: HYDRALAZINE HYDROCHLORIDE
     Dates: start: 20211216, end: 20211219
  9. HYDROMORPHONE [Concomitant]
     Active Substance: HYDROMORPHONE
     Dates: start: 20211215, end: 20211219
  10. HYDROXYZINE [Concomitant]
     Active Substance: HYDROXYZINE HYDROCHLORIDE
     Dates: start: 20211217, end: 20211217
  11. MORPHINE [Concomitant]
     Active Substance: MORPHINE
     Dates: start: 20211217, end: 20211217
  12. OXYCODONE [Concomitant]
     Active Substance: OXYCODONE
     Dates: start: 20211216, end: 20211219
  13. ONDANSETRON [Concomitant]
     Active Substance: ONDANSETRON
     Dates: start: 20211216, end: 20211217
  14. PROMETHAZINE [Concomitant]
     Active Substance: PROMETHAZINE HYDROCHLORIDE
     Dates: start: 20211216, end: 20211216

REACTIONS (3)
  - Skin exfoliation [None]
  - Blood creatinine increased [None]
  - Drug level increased [None]

NARRATIVE: CASE EVENT DATE: 20211218
